FAERS Safety Report 9147027 (Version 1)
Quarter: 2013Q1

REPORT INFORMATION
  Report Type: Report from Study
  Country: AU (occurrence: AU)
  Receive Date: 20130307
  Receipt Date: 20130307
  Transmission Date: 20140127
  Serious: Yes (Other)
  Sender: FDA-Public Use
  Company Number: AU-ROCHE-1198631

PATIENT
  Sex: Female

DRUGS (2)
  1. LUCENTIS [Suspect]
     Indication: AGE-RELATED MACULAR DEGENERATION
     Route: 050
     Dates: start: 2011
  2. LUCENTIS [Suspect]
     Route: 050
     Dates: start: 201211

REACTIONS (3)
  - Conjunctivitis viral [Recovering/Resolving]
  - Age-related macular degeneration [Recovering/Resolving]
  - Anxiety [Recovering/Resolving]
